FAERS Safety Report 25202846 (Version 1)
Quarter: 2025Q2

REPORT INFORMATION
  Report Type: Report from Study
  Country: CA (occurrence: CA)
  Receive Date: 20250416
  Receipt Date: 20250416
  Transmission Date: 20250717
  Serious: Yes (Other)
  Sender: TOLMAR
  Company Number: TLM-2025-00191(0)

PATIENT
  Age: 85 Year
  Sex: Male

DRUGS (4)
  1. ELIGARD [Suspect]
     Active Substance: LEUPROLIDE ACETATE
     Indication: Prostate cancer
     Dosage: 30 MG, EVERY 4 MONTHS
     Route: 058
     Dates: start: 20240507
  2. ELIGARD [Suspect]
     Active Substance: LEUPROLIDE ACETATE
     Dosage: 30 MG, EVERY 4 MONTHS
     Route: 058
     Dates: start: 20250402
  3. ELIGARD [Suspect]
     Active Substance: LEUPROLIDE ACETATE
     Indication: Prostate cancer
  4. TYLENOL [Concomitant]
     Active Substance: ACETAMINOPHEN
     Indication: Product used for unknown indication
     Dosage: TWICE A DAY

REACTIONS (1)
  - Lower respiratory tract infection [Recovering/Resolving]
